FAERS Safety Report 9713495 (Version 1)
Quarter: 2013Q4

REPORT INFORMATION
  Report Type: Spontaneous
  Country: FR (occurrence: FR)
  Receive Date: 20131126
  Receipt Date: 20131126
  Transmission Date: 20140711
  Serious: Yes (Hospitalization)
  Sender: FDA-Public Use
  Company Number: FR-ASTRAZENECA-2013SE85324

PATIENT
  Age: 23116 Day
  Sex: Male

DRUGS (8)
  1. INEXIUM [Suspect]
     Route: 048
     Dates: end: 20131005
  2. POTASSIUM [Concomitant]
  3. LEXOMIL ROCHE [Concomitant]
  4. SOLUPRED [Concomitant]
  5. DUROGESIC [Concomitant]
  6. OXYNORM [Concomitant]
  7. PLAVIX [Concomitant]
  8. TRANSIPEG [Concomitant]

REACTIONS (3)
  - Cerebrovascular accident [Unknown]
  - Lung disorder [Unknown]
  - Hyponatraemia [Recovering/Resolving]
